FAERS Safety Report 7465584-8 (Version None)
Quarter: 2011Q2

REPORT INFORMATION
  Report Type: 
  Country: None (occurrence: None)
  Receive Date: 20110509
  Receipt Date: 20110428
  Transmission Date: 20111010
  Serious: Yes (Other)
  Sender: FDA-Public Use
  Company Number: GB-SANOFI-AVENTIS-2011SA023058

PATIENT
  Age: 74 Year
  Sex: Female
  Weight: 73 kg

DRUGS (8)
  1. MULTAQ [Suspect]
     Route: 048
     Dates: start: 20100923
  2. AMIODARONE [Concomitant]
     Route: 065
  3. ASPIRIN [Concomitant]
     Route: 048
     Dates: start: 20070101
  4. FOLIC ACID [Concomitant]
     Route: 048
     Dates: start: 20100921
  5. TAXOL [Concomitant]
  6. BONDRONAT [Concomitant]
     Route: 048
     Dates: start: 20100426
  7. FASLODEX [Concomitant]
     Route: 030
     Dates: start: 20100426
  8. ANALGESICS [Concomitant]

REACTIONS (5)
  - OPTIC NEURITIS [None]
  - CONDITION AGGRAVATED [None]
  - VISUAL IMPAIRMENT [None]
  - VISUAL FIELD DEFECT [None]
  - HYPOTHYROIDISM [None]
